FAERS Safety Report 9410722 (Version 1)
Quarter: 2013Q3

REPORT INFORMATION
  Report Type: Report from Study
  Country: BR (occurrence: BR)
  Receive Date: 20130719
  Receipt Date: 20130719
  Transmission Date: 20140515
  Serious: Yes (Hospitalization, Other)
  Sender: FDA-Public Use
  Company Number: BR-ABBOTT-13P-020-1119069-00

PATIENT
  Sex: Female

DRUGS (5)
  1. HUMIRA [Suspect]
     Indication: RHEUMATOID ARTHRITIS
     Route: 058
  2. HUMIRA [Suspect]
     Route: 058
     Dates: start: 20120523
  3. HUMIRA [Suspect]
     Route: 058
     Dates: start: 20130505
  4. HUMIRA [Suspect]
     Route: 058
  5. METILPREDNISOLONA [Concomitant]
     Indication: ARTHRITIS
     Route: 048
     Dates: start: 1998

REACTIONS (1)
  - Obesity [Recovered/Resolved]
